FAERS Safety Report 8044366-2 (Version None)
Quarter: 2012Q1

REPORT INFORMATION
  Report Type: 
  Country: None (occurrence: None)
  Receive Date: 20120111
  Receipt Date: 20120111
  Transmission Date: 20120608
  Serious: Yes (Other)
  Sender: FDA-Public Use
  Company Number: None

PATIENT
  Age: 43 Year
  Sex: Female
  Weight: 127.0072 kg

DRUGS (1)
  1. COPAXONE [Suspect]
     Indication: MULTIPLE SCLEROSIS
     Dosage: 20 MG ONCE DAILY SQ
     Route: 058
     Dates: start: 19980101, end: 20120109

REACTIONS (3)
  - FLUSHING [None]
  - CHEST PAIN [None]
  - PAIN IN EXTREMITY [None]
